FAERS Safety Report 24415034 (Version 2)
Quarter: 2024Q4

REPORT INFORMATION
  Report Type: Spontaneous
  Country: FR (occurrence: FR)
  Receive Date: 20241009
  Receipt Date: 20241209
  Transmission Date: 20250115
  Serious: Yes (Other)
  Sender: NOVARTIS
  Company Number: None

PATIENT
  Age: 36 Year
  Sex: Male
  Weight: 82 kg

DRUGS (3)
  1. SECUKINUMAB [Suspect]
     Active Substance: SECUKINUMAB
     Indication: Psoriatic arthropathy
     Dosage: 150 MG, CYCLIC (MAMMIFERE/HAMSTER/CELLULES CHO)
     Route: 051
     Dates: start: 202106, end: 202302
  2. EFFEXOR [Suspect]
     Active Substance: VENLAFAXINE HYDROCHLORIDE
     Indication: Psoriatic arthropathy
     Dosage: UNK
     Route: 065
  3. TREMFYA [Suspect]
     Active Substance: GUSELKUMAB
     Indication: Psoriatic arthropathy
     Dosage: 1 DOSAGE FORM, Q2MO
     Route: 051
     Dates: start: 202302

REACTIONS (1)
  - Metabolic dysfunction-associated steatohepatitis [Not Recovered/Not Resolved]

NARRATIVE: CASE EVENT DATE: 20240620
